FAERS Safety Report 5155321-4 (Version None)
Quarter: 2006Q4

REPORT INFORMATION
  Report Type: 
  Country: None (occurrence: None)
  Receive Date: 20061121
  Receipt Date: 20061115
  Transmission Date: 20070319
  Serious: Yes (Hospitalization)
  Sender: FDA-Public Use
  Company Number: 2006PK02370

PATIENT
  Age: 19335 Day
  Sex: Male

DRUGS (6)
  1. SEROQUEL [Suspect]
     Indication: DEPRESSION
     Dosage: 50 MG TO 100 MG
     Route: 048
     Dates: start: 20060101, end: 20060126
  2. SEROQUEL [Suspect]
     Route: 048
     Dates: start: 20060127
  3. VENLAFAXINE HCL [Concomitant]
     Indication: DEPRESSION
     Dosage: 75 MG TO 150 MG
     Route: 048
     Dates: start: 20060101, end: 20060205
  4. VENLAFAXINE HCL [Concomitant]
     Route: 048
     Dates: start: 20060206
  5. LEVOTHYROXINE SODIUM [Concomitant]
     Route: 048
  6. ASPIRIN [Concomitant]
     Route: 048
     Dates: start: 20030101, end: 20060125

REACTIONS (4)
  - CONDITION AGGRAVATED [None]
  - DEEP VEIN THROMBOSIS [None]
  - DEPRESSION [None]
  - WEIGHT DECREASED [None]
